FAERS Safety Report 7335628-2 (Version None)
Quarter: 2011Q1

REPORT INFORMATION
  Report Type: 
  Country: None (occurrence: None)
  Receive Date: 20110307
  Receipt Date: 20110302
  Transmission Date: 20110831
  Serious: Yes (Hospitalization, Congenital Anomaly)
  Sender: FDA-Public Use
  Company Number: A0884062A

PATIENT
  Sex: Female

DRUGS (1)
  1. PAXIL [Suspect]
     Indication: PANIC ATTACK
     Route: 064
     Dates: start: 19980508, end: 20080101

REACTIONS (9)
  - VENTRICULAR SEPTAL DEFECT [None]
  - DIGEORGE'S SYNDROME [None]
  - INTERRUPTION OF AORTIC ARCH [None]
  - AORTIC VALVE DISEASE [None]
  - CONGENITAL AORTIC STENOSIS [None]
  - DRUG EXPOSURE DURING PREGNANCY [None]
  - COARCTATION OF THE AORTA [None]
  - HEART DISEASE CONGENITAL [None]
  - CONGENITAL AORTIC VALVE INCOMPETENCE [None]
